FAERS Safety Report 24303501 (Version 1)
Quarter: 2024Q3

REPORT INFORMATION
  Report Type: Spontaneous
  Country: FR (occurrence: FR)
  Receive Date: 20240910
  Receipt Date: 20240910
  Transmission Date: 20241016
  Serious: Yes (Hospitalization)
  Sender: AMGEN
  Company Number: FR-ROCHE-10000032168

PATIENT
  Age: 74 Year
  Sex: Male

DRUGS (3)
  1. BEVACIZUMAB [Suspect]
     Active Substance: BEVACIZUMAB
     Indication: Non-small cell lung cancer
     Dosage: 15 MILLIGRAM/KILOGRAM, Q3WK (ON 05-JUL-2024, HE RECEIVED LAST DOSE OF BEVACIZUMAB.)
     Route: 040
     Dates: start: 20240614
  2. PACLITAXEL [Suspect]
     Active Substance: PACLITAXEL
     Indication: Non-small cell lung cancer
     Dosage: 200 MILLIGRAM/SQ. METER, Q3WK (ON 05-JUL-2024, HE RECEIVED LAST DOSE OF PACLITAXEL.)
     Route: 040
     Dates: start: 20240614
  3. ATEZOLIZUMAB [Concomitant]
     Active Substance: ATEZOLIZUMAB
     Indication: Non-small cell lung cancer
     Dosage: 1200 MILLIGRAM, Q3WK (ON 05-JUL-2024, HE RECEIVED LAST DOSE OF ATEZOLIZUMAB.)
     Route: 040
     Dates: start: 20240614

REACTIONS (2)
  - Laryngeal haemorrhage [Recovered/Resolved]
  - Dysphagia [Recovered/Resolved]

NARRATIVE: CASE EVENT DATE: 20240717
